FAERS Safety Report 25077238 (Version 2)
Quarter: 2025Q2

REPORT INFORMATION
  Report Type: Spontaneous
  Country: US (occurrence: US)
  Receive Date: 20250314
  Receipt Date: 20250512
  Transmission Date: 20250716
  Serious: No
  Sender: ROCHE
  Company Number: US-ROCHE-10000223524

PATIENT
  Age: 23 Year
  Sex: Female
  Weight: 61.23 kg

DRUGS (3)
  1. XOLAIR PFS [Suspect]
     Active Substance: OMALIZUMAB
     Indication: Urticaria
     Dosage: TWO 150MG DEVICES 300MG/PER MONTH
     Route: 058
  2. XOLAIR [Suspect]
     Active Substance: OMALIZUMAB
     Indication: Urticaria
     Route: 058
  3. XOLAIR [Suspect]
     Active Substance: OMALIZUMAB
     Indication: Chronic spontaneous urticaria

REACTIONS (6)
  - Product dose omission issue [Unknown]
  - Product complaint [Unknown]
  - Device failure [Unknown]
  - No adverse event [Unknown]
  - Underdose [Unknown]
  - Needle issue [Unknown]

NARRATIVE: CASE EVENT DATE: 20250302
